FAERS Safety Report 5565364-4 (Version None)
Quarter: 2007Q4

REPORT INFORMATION
  Report Type: 
  Country: None (occurrence: None)
  Receive Date: 20071218
  Receipt Date: 20071206
  Transmission Date: 20080405
  Serious: Yes (Hospitalization, Other)
  Sender: FDA-Public Use
  Company Number: US-PFIZER INC-2007051178

PATIENT
  Sex: Female
  Weight: 55.2 kg

DRUGS (5)
  1. SUTENT [Suspect]
     Indication: SARCOMA UTERUS
     Route: 048
  2. GELCLAIR [Concomitant]
  3. FOSAMAX [Concomitant]
  4. LOPERAMIDE HYDROCHLORIDE [Concomitant]
  5. ACETYLSALICYLIC ACID SRT [Concomitant]
     Indication: PAIN

REACTIONS (1)
  - DIZZINESS [None]
